FAERS Safety Report 19805232 (Version 1)
Quarter: 2021Q3

REPORT INFORMATION
  Report Type: Spontaneous
  Country: US (occurrence: US)
  Receive Date: 20210909
  Receipt Date: 20210909
  Transmission Date: 20211014
  Serious: No
  Sender: FDA-Public Use
  Company Number: US-ROCHE-2795606

PATIENT
  Sex: Male

DRUGS (1)
  1. ALECENSA [Suspect]
     Active Substance: ALECTINIB HYDROCHLORIDE
     Indication: LUNG NEOPLASM MALIGNANT
     Dosage: ONGOING: YES
     Route: 048
     Dates: start: 20210225

REACTIONS (3)
  - Hypovitaminosis [Unknown]
  - Fatigue [Recovered/Resolved]
  - Mineral deficiency [Unknown]
